FAERS Safety Report 13383036 (Version 1)
Quarter: 2017Q1

REPORT INFORMATION
  Report Type: Spontaneous
  Country: US (occurrence: US)
  Receive Date: 20170329
  Receipt Date: 20170329
  Transmission Date: 20170429
  Serious: Yes (Other)
  Sender: FDA-Public Use
  Company Number: US-AMGEN-USASP2017044320

PATIENT
  Age: 60 Year
  Sex: Female
  Weight: 59.8 kg

DRUGS (18)
  1. XGEVA [Suspect]
     Active Substance: DENOSUMAB
     Indication: PRODUCT USED FOR UNKNOWN INDICATION
     Dosage: 120 MG, Q4WK
     Route: 058
  2. CLARITIN [Concomitant]
     Active Substance: LORATADINE
     Dosage: 10 MG, QD AS NEEDED
     Route: 048
  3. REGLAN [Concomitant]
     Active Substance: METOCLOPRAMIDE HYDROCHLORIDE
     Dosage: 10 MG, QID
     Route: 048
  4. IMODIUM [Concomitant]
     Active Substance: LOPERAMIDE HYDROCHLORIDE
     Dosage: 2 MG, QID, AS NEEDED
     Route: 048
  5. HERCEPTIN [Concomitant]
     Active Substance: TRASTUZUMAB
     Dosage: 354 TO 366 MG (6 MG/KG), UNK
     Route: 042
  6. NORMAL SALINE [Concomitant]
     Active Substance: SODIUM CHLORIDE
     Dosage: 250 ML, AS NECESSARY
     Route: 042
  7. READI-CAT [Concomitant]
     Active Substance: BARIUM SULFATE
     Dosage: 2 % (900 ML), UNK
  8. AROMASIN [Suspect]
     Active Substance: EXEMESTANE
     Indication: PRODUCT USED FOR UNKNOWN INDICATION
     Dosage: UNK
     Route: 065
  9. HEPARIN FLUSH [Concomitant]
     Active Substance: HEPARIN SODIUM
     Dosage: 5 ML, UNK
  10. ZOFRAN [Concomitant]
     Active Substance: ONDANSETRON HYDROCHLORIDE
     Dosage: 8 MG, UNK
  11. XELODA [Concomitant]
     Active Substance: CAPECITABINE
     Indication: BREAST CANCER
     Dosage: 1000 MG, BID, ONE WEEK ON ONE WEEK OFF
     Route: 048
  12. EMLA [Concomitant]
     Active Substance: LIDOCAINE\PRILOCAINE
     Dosage: UNK
     Route: 061
  13. XGEVA [Suspect]
     Active Substance: DENOSUMAB
     Dosage: UNK, ONCE IN EVERY SIX WEEKS
     Route: 058
  14. PERJETA [Concomitant]
     Active Substance: PERTUZUMAB
     Dosage: 420 MG, UNK
     Route: 042
  15. FASLODEX [Concomitant]
     Active Substance: FULVESTRANT
     Dosage: UNK
  16. BEPREVE [Concomitant]
     Active Substance: BEPOTASTINE BESILATE
     Dosage: ONE DROP INTO THE RIGHT EYE, QD
  17. LEVSIN [Concomitant]
     Active Substance: HYOSCYAMINE SULFATE
     Indication: MUSCLE SPASMS
     Dosage: 0.125 MG, Q4H
     Route: 048
  18. LEVSIN [Concomitant]
     Active Substance: HYOSCYAMINE SULFATE
     Indication: BLADDER SPASM

REACTIONS (46)
  - Anxiety [Recovering/Resolving]
  - Hypotension [Recovered/Resolved]
  - Eosinophil count increased [Unknown]
  - Mean platelet volume decreased [Unknown]
  - Metastases to bone [Unknown]
  - Abdominal mass [Unknown]
  - Vulvovaginal dryness [Recovering/Resolving]
  - Weight decreased [Unknown]
  - Ejection fraction decreased [Unknown]
  - Red blood cell count decreased [Unknown]
  - Abdominal distension [Unknown]
  - Pulmonary mass [Unknown]
  - Pleural disorder [Unknown]
  - Nodule [Unknown]
  - Bursitis [Unknown]
  - Neutrophil count decreased [Unknown]
  - Monocyte count increased [Unknown]
  - Biliary drainage [Unknown]
  - Pruritus [Unknown]
  - Stomatitis [Unknown]
  - Presyncope [Recovered/Resolved]
  - Haematocrit decreased [Unknown]
  - Red cell distribution width increased [Unknown]
  - Syncope [Recovered/Resolved]
  - Gastrointestinal carcinoma [Unknown]
  - Loss of consciousness [Recovered/Resolved]
  - Rash erythematous [Unknown]
  - Malaise [Unknown]
  - Off label use [Unknown]
  - Insomnia [Unknown]
  - Fatigue [Unknown]
  - Breast cancer metastatic [Unknown]
  - Pancreatic cyst [Unknown]
  - Gastrointestinal wall thickening [Unknown]
  - Haemoglobin decreased [Unknown]
  - Depression [Recovering/Resolving]
  - Bone lesion [Unknown]
  - Abdominal pain [Unknown]
  - Vulvovaginal discomfort [Recovering/Resolving]
  - Liver function test abnormal [Unknown]
  - Basophil count increased [Unknown]
  - Dizziness [Recovered/Resolved]
  - Diarrhoea [Unknown]
  - Rash papular [Unknown]
  - Onychoclasis [Unknown]
  - Full blood count increased [Unknown]

NARRATIVE: CASE EVENT DATE: 2015
